FAERS Safety Report 17209584 (Version 2)
Quarter: 2020Q2

REPORT INFORMATION
  Report Type: Spontaneous
  Country: US (occurrence: US)
  Receive Date: 20191227
  Receipt Date: 20200521
  Transmission Date: 20200713
  Serious: No
  Sender: FDA-Public Use
  Company Number: US-SA-2019SA358808

PATIENT
  Age: 49 Year
  Sex: Male

DRUGS (2)
  1. DUPIXENT [Suspect]
     Active Substance: DUPILUMAB
     Indication: ASTHMA
     Dosage: 200 MG, QOW
     Route: 058
  2. XOLAIR [Concomitant]
     Active Substance: OMALIZUMAB
     Dosage: UNK
     Route: 065

REACTIONS (2)
  - Diarrhoea [Unknown]
  - Nasopharyngitis [Unknown]
